FAERS Safety Report 4881344-6 (Version None)
Quarter: 2005Q4

REPORT INFORMATION
  Report Type: 
  Country: None (occurrence: None)
  Receive Date: 20051212
  Receipt Date: 20050912
  Transmission Date: 20060501
  Serious: No
  Sender: FDA-Public Use
  Company Number: M03-341-085

PATIENT
  Age: 67 Year
  Sex: Female
  Weight: 96.6 kg

DRUGS (11)
  1. VELCADE [Suspect]
     Indication: MULTIPLE MYELOMA
     Dosage: 1.30 MG/M2, IV BOLUS
     Route: 040
     Dates: start: 20030812, end: 20030821
  2. DURAGESIC-100 [Concomitant]
  3. HYDRALAZINE [Concomitant]
  4. FUROSEMIDE [Concomitant]
  5. PROCRIT [Concomitant]
  6. NEUPOGEN [Concomitant]
  7. INSULIN [Concomitant]
  8. LEVAQUIN [Concomitant]
  9. CORGARD [Concomitant]
  10. VASOTEC [Concomitant]
  11. LIPITOR [Concomitant]

REACTIONS (2)
  - HERPES ZOSTER [None]
  - PAIN [None]
